FAERS Safety Report 12163204 (Version 1)
Quarter: 2016Q1

REPORT INFORMATION
  Report Type: Spontaneous
  Country: US (occurrence: US)
  Receive Date: 20160309
  Receipt Date: 20160309
  Transmission Date: 20160526
  Serious: No
  Sender: FDA-Public Use
  Company Number: US-ROCHE-1581911

PATIENT
  Age: 58 Year
  Sex: Female

DRUGS (6)
  1. XOLAIR [Suspect]
     Active Substance: OMALIZUMAB
     Indication: ASTHMA
     Route: 058
     Dates: start: 20120830
  2. IPRATROPIUM [Concomitant]
     Active Substance: IPRATROPIUM
     Indication: ASTHMA
     Dosage: NEBULIZED
     Route: 065
  3. BUDESONIDE. [Concomitant]
     Active Substance: BUDESONIDE
     Indication: ASTHMA
     Dosage: NEBULIZED
     Route: 065
  4. SYMBICORT [Concomitant]
     Active Substance: BUDESONIDE\FORMOTEROL FUMARATE DIHYDRATE
     Indication: ASTHMA
     Dosage: 2 PUFFS
     Route: 045
  5. PROAIR HFA [Concomitant]
     Active Substance: ALBUTEROL SULFATE
     Indication: ASTHMA
     Dosage: 4-5 TIMES A DAY
     Route: 065
  6. ALBUTEROL. [Concomitant]
     Active Substance: ALBUTEROL
     Indication: ASTHMA
     Dosage: NEBULIZED
     Route: 065

REACTIONS (2)
  - Drug ineffective [Unknown]
  - Cough [Not Recovered/Not Resolved]

NARRATIVE: CASE EVENT DATE: 20140220
